FAERS Safety Report 7383949-X (Version None)
Quarter: 2011Q1

REPORT INFORMATION
  Report Type: 
  Country: None (occurrence: None)
  Receive Date: 20110330
  Receipt Date: 20101223
  Transmission Date: 20110831
  Serious: No
  Sender: FDA-Public Use
  Company Number: US-MYLANLABS-2010S1023725

PATIENT
  Age: 24 Year
  Sex: Female

DRUGS (2)
  1. ORAL CONTRACEPTIVE NOS [Concomitant]
  2. TOPIRAMATE [Suspect]
     Indication: BENIGN INTRACRANIAL HYPERTENSION
     Route: 048
     Dates: start: 20101001

REACTIONS (3)
  - DYSPEPSIA [None]
  - PARAESTHESIA [None]
  - MUSCLE CONTRACTIONS INVOLUNTARY [None]
